FAERS Safety Report 17923122 (Version 1)
Quarter: 2020Q2

REPORT INFORMATION
  Report Type: Spontaneous
  Country: GB (occurrence: GB)
  Receive Date: 20200622
  Receipt Date: 20200622
  Transmission Date: 20200714
  Serious: Yes (Hospitalization)
  Sender: FDA-Public Use
  Company Number: GB-TEVA-2020-GB-1790120

PATIENT
  Age: 69 Year
  Sex: Male

DRUGS (13)
  1. LITHIUM. [Interacting]
     Active Substance: LITHIUM
     Indication: BIPOLAR DISORDER
     Route: 065
  2. OLANZAPINE. [Concomitant]
     Active Substance: OLANZAPINE
     Dosage: 10 MILLIGRAM DAILY;
  3. WARFARIN [Suspect]
     Active Substance: WARFARIN
     Indication: ATRIAL FIBRILLATION
     Route: 065
  4. VALPROATE SEMISODIUM [Suspect]
     Active Substance: DIVALPROEX SODIUM
     Dosage: 750 MILLIGRAM DAILY; THREE TIMES A DAY
     Route: 065
  5. ZOPICLONE [Concomitant]
     Active Substance: ZOPICLONE
     Dosage: 7.5 MG AT NIGHT
  6. FUROSEMIDE. [Interacting]
     Active Substance: FUROSEMIDE
     Indication: LYMPHOEDEMA
     Dosage: 40 MILLIGRAM DAILY;
     Route: 048
  7. OLANZAPINE. [Concomitant]
     Active Substance: OLANZAPINE
     Dosage: 10 MILLIGRAM DAILY; AT NIGHT
  8. FLUCLOXACILLIN [Concomitant]
     Active Substance: FLUCLOXACILLIN
     Indication: CELLULITIS
     Dosage: 4 GRAM DAILY;
     Route: 048
  9. BISOPROLOL [Suspect]
     Active Substance: BISOPROLOL
     Indication: MYOCARDIAL INFARCTION
     Route: 065
  10. LORAZEPAM. [Suspect]
     Active Substance: LORAZEPAM
     Indication: AGITATION
     Dosage: 0.5MG PRN WITH A MAXIMUM DOSAGE OF 2MG PER DAY
     Route: 065
  11. OLANZAPINE. [Concomitant]
     Active Substance: OLANZAPINE
     Dosage: 5 MILLIGRAM DAILY; THREE DAYS LATER, OLANZAPINE WAS INCREASED TO 5MG TWICE A DAY
  12. VALPROATE SEMISODIUM [Suspect]
     Active Substance: DIVALPROEX SODIUM
     Indication: AGITATION
     Dosage: 500 MILLIGRAM DAILY;
     Route: 065
  13. OLANZAPINE. [Concomitant]
     Active Substance: OLANZAPINE
     Dosage: 15 MG AT NIGHT

REACTIONS (12)
  - Confusional state [Recovering/Resolving]
  - Ataxia [Recovering/Resolving]
  - Hypotension [Unknown]
  - Bipolar disorder [Recovering/Resolving]
  - Sleep disorder [Recovering/Resolving]
  - Fall [Recovering/Resolving]
  - Drug interaction [Recovering/Resolving]
  - Toxicity to various agents [Recovering/Resolving]
  - Agitation [Recovering/Resolving]
  - Head injury [Unknown]
  - Rebound effect [Recovering/Resolving]
  - International normalised ratio increased [Unknown]
